FAERS Safety Report 5855867-7 (Version None)
Quarter: 2008Q3

REPORT INFORMATION
  Report Type: 
  Country: None (occurrence: None)
  Receive Date: 20080825
  Receipt Date: 20080630
  Transmission Date: 20090109
  Serious: No
  Sender: FDA-Public Use
  Company Number: A0732750A

PATIENT
  Age: 49 Year
  Sex: Male
  Weight: 78.5 kg

DRUGS (1)
  1. MALARONE [Suspect]
     Indication: PROPHYLAXIS
     Dosage: 1TAB SINGLE DOSE
     Route: 048
     Dates: start: 20080529, end: 20080530

REACTIONS (2)
  - ERYTHEMA [None]
  - FATIGUE [None]
